FAERS Safety Report 17287217 (Version 1)
Quarter: 2020Q1

REPORT INFORMATION
  Report Type: Spontaneous
  Country: US (occurrence: US)
  Receive Date: 20200120
  Receipt Date: 20200120
  Transmission Date: 20200409
  Serious: Yes (Hospitalization, Other)
  Sender: FDA-Public Use
  Company Number: US-LUPIN PHARMACEUTICALS INC.-2020-00166

PATIENT
  Age: 22 Year
  Sex: Female

DRUGS (20)
  1. LORAZEPAM. [Suspect]
     Active Substance: LORAZEPAM
     Indication: SEDATION
  2. VERAPAMIL [Suspect]
     Active Substance: VERAPAMIL HYDROCHLORIDE
     Indication: TACHYARRHYTHMIA
     Dosage: 240 MILLIGRAM, TID
     Route: 065
  3. DIAZEPAM. [Suspect]
     Active Substance: DIAZEPAM
     Indication: ARTERIOSPASM CORONARY
     Dosage: 7 MILLIGRAM, TID
     Route: 065
  4. NIFEDIPINE. [Suspect]
     Active Substance: NIFEDIPINE
     Indication: ARTERIOSPASM CORONARY
     Dosage: 90 MILLIGRAM, QD
     Route: 065
  5. ISOSORBIDE MONONITRATE. [Suspect]
     Active Substance: ISOSORBIDE MONONITRATE
     Indication: ARTERIOSPASM CORONARY
     Dosage: 60 MILLIGRAM, QD
     Route: 005
  6. VERAPAMIL [Suspect]
     Active Substance: VERAPAMIL HYDROCHLORIDE
     Indication: ARTERIOSPASM CORONARY
     Dosage: 120 MILLIGRAM, TID
     Route: 065
  7. NITROGLYCERIN. [Suspect]
     Active Substance: NITROGLYCERIN
     Indication: TACHYARRHYTHMIA
     Dosage: 0.4 MILLIGRAM (AS NEEDED)
     Route: 060
  8. LORAZEPAM. [Suspect]
     Active Substance: LORAZEPAM
     Indication: TACHYARRHYTHMIA
  9. DIAZEPAM. [Suspect]
     Active Substance: DIAZEPAM
     Indication: SEDATION
  10. METOPROLOL. [Suspect]
     Active Substance: METOPROLOL
     Indication: ARTERIOSPASM CORONARY
     Dosage: 25 MILLIGRAM, TID
     Route: 065
  11. NITROGLYCERIN. [Suspect]
     Active Substance: NITROGLYCERIN
     Indication: ARTERIOSPASM CORONARY
     Dosage: 500 MICROGRAMS/MIN
     Route: 042
  12. ISOSORBIDE MONONITRATE. [Suspect]
     Active Substance: ISOSORBIDE MONONITRATE
     Indication: TACHYARRHYTHMIA
  13. MAGNESIUM [Concomitant]
     Active Substance: MAGNESIUM
     Indication: SUPPLEMENTATION THERAPY
     Dosage: UNK
     Route: 065
  14. ROPIVACAINE. [Suspect]
     Active Substance: ROPIVACAINE HYDROCHLORIDE
     Indication: TACHYARRHYTHMIA
  15. NITROGLYCERIN. [Suspect]
     Active Substance: NITROGLYCERIN
     Indication: ANGINA PECTORIS
     Dosage: UNK
     Route: 060
  16. LORAZEPAM. [Suspect]
     Active Substance: LORAZEPAM
     Indication: ARTERIOSPASM CORONARY
     Dosage: UNK, (AS NEEDED)
     Route: 065
  17. DIAZEPAM. [Suspect]
     Active Substance: DIAZEPAM
     Indication: TACHYARRHYTHMIA
  18. METOPROLOL. [Suspect]
     Active Substance: METOPROLOL
     Indication: TACHYARRHYTHMIA
  19. ROPIVACAINE. [Suspect]
     Active Substance: ROPIVACAINE HYDROCHLORIDE
     Indication: ARTERIOSPASM CORONARY
     Dosage: UNK
     Route: 065
  20. NIFEDIPINE. [Suspect]
     Active Substance: NIFEDIPINE
     Indication: TACHYARRHYTHMIA

REACTIONS (6)
  - Ventricular tachyarrhythmia [Not Recovered/Not Resolved]
  - Off label use [Unknown]
  - Exposure during pregnancy [Unknown]
  - Drug ineffective for unapproved indication [Unknown]
  - Premature delivery [Unknown]
  - Arteriospasm coronary [Not Recovered/Not Resolved]
